FAERS Safety Report 8473542-X (Version None)
Quarter: 2012Q2

REPORT INFORMATION
  Report Type: 
  Country: None (occurrence: None)
  Receive Date: 20120621
  Receipt Date: 20120606
  Transmission Date: 20120825
  Serious: Yes (Death, Hospitalization, Disabling, Other)
  Sender: FDA-Public Use
  Company Number: 2010MA004583

PATIENT
  Sex: Male
  Weight: 77.1115 kg

DRUGS (76)
  1. AMMONIUM LACTATE [Concomitant]
  2. CODEINE PHOSPHATE AND ACETAMINOPHEN [Concomitant]
  3. DIFLORAXONE [Concomitant]
  4. FERROUS SULFATE TAB [Concomitant]
  5. HUMULIN 70/30 [Concomitant]
  6. IBUPROFEN [Concomitant]
  7. REGULAR INSULIN [Concomitant]
  8. NOVOLIN 70/30 [Concomitant]
  9. PROPOXYPHENE NAPSYLATE [Concomitant]
  10. SULFAMETHOXAZOLE AND TRIMETHOPRIM [Concomitant]
  11. ASPIRIN [Concomitant]
  12. CEPHALEXIN [Concomitant]
  13. CETIRIZINE [Concomitant]
  14. DOCUSATE [Concomitant]
  15. FINASTERIDE [Concomitant]
  16. FUROSEMIDE [Concomitant]
  17. MORPHINE SULFATE [Concomitant]
  18. PSYLLIUM [Concomitant]
  19. THERAPEUTIC VITAMIN-MINERAL TAB [Concomitant]
  20. METOCLOPRAMIDE [Suspect]
     Indication: GASTROOESOPHAGEAL REFLUX DISEASE
     Dosage: 5 MG;AC + HS;PO
     Route: 048
     Dates: start: 19850101, end: 20070219
  21. METOCLOPRAMIDE [Suspect]
     Indication: GASTRIC DISORDER
     Dosage: 5 MG;AC + HS;PO
     Route: 048
     Dates: start: 19850101, end: 20070219
  22. ALBUTEROL [Concomitant]
  23. CHLORHEXIDINE GLUCONATE [Concomitant]
  24. COLON ELECTROLYTE LAVAGE [Concomitant]
  25. DIPHENHYDRAMINE HCL [Concomitant]
  26. GABAPENTIN [Concomitant]
  27. LUCTULOSE [Concomitant]
  28. MINODOXIL [Concomitant]
  29. MUPIROCIN [Concomitant]
  30. NAPROXEN [Concomitant]
  31. ACETAMINOPHEN [Concomitant]
  32. AMITRIPTYLINE HCL [Concomitant]
  33. ATENOLOL [Concomitant]
  34. CLARITHROMYCIN [Concomitant]
  35. LORATADINE [Concomitant]
  36. SIMVASTATIN [Concomitant]
  37. TEGASEROD [Concomitant]
  38. CADEXOMER IODINE [Concomitant]
  39. COMPHOR/MENTHOL [Concomitant]
  40. EPORTIN ALFA [Concomitant]
  41. FELODIPINE [Concomitant]
  42. FLUNISOLIDE [Concomitant]
  43. GEMFIBROZIL [Concomitant]
  44. GUAIFENESIN [Concomitant]
  45. HC/N-MYXIN OTIC [Concomitant]
  46. NPH INSULIN [Concomitant]
  47. LANSOPRAZOLE [Concomitant]
  48. OXYCODONE/ACETAMINOPHEN [Concomitant]
  49. POLYSTYRENE SOLIUM SULFONATE [Concomitant]
  50. PROMETHAZINE [Concomitant]
  51. RABEPRAZOLE SODIUM [Concomitant]
  52. RANITIDINE [Concomitant]
  53. DILTIAZEM HYDROCHOLORIDE [Concomitant]
  54. HYDROCHLOROTHIAZIDE [Concomitant]
  55. IPRATROPIUM BROMIDE [Concomitant]
  56. METHOCARBAMOL [Concomitant]
  57. METOPROLOL SUCCINATE [Concomitant]
  58. NITROGLYCERIN [Concomitant]
  59. OMEPRAZOLE [Concomitant]
  60. OXAPROZIN [Concomitant]
  61. PSEUDOEPHEDRINE HCL [Concomitant]
  62. SERTRALINE HYDROCHLORIDE [Concomitant]
  63. BRIMONIDINE TARTRATE [Concomitant]
  64. CLINDAMYCIN [Concomitant]
  65. ROSUVASTATIN [Concomitant]
  66. SENNA-MINT WAF [Concomitant]
  67. TERAZOSIN HCL [Concomitant]
  68. CALCIUM CARBONATE [Concomitant]
  69. CETIRIZINE [Concomitant]
  70. CHLORHEXIDINE GLUCONATE [Concomitant]
  71. DOXYCYCLINE HYCLATE [Concomitant]
  72. FEXOFENADINE [Concomitant]
  73. GATIFLOXACIN [Concomitant]
  74. ISOSORBIDE [Concomitant]
  75. LISINOPRIL [Concomitant]
  76. RIFAMPIN [Concomitant]

REACTIONS (40)
  - ANXIETY [None]
  - ASTHENIA [None]
  - OSTEOMYELITIS [None]
  - COLONIC POLYP [None]
  - HYPERTENSION [None]
  - PERIPHERAL VASCULAR DISORDER [None]
  - DIABETIC RETINOPATHY [None]
  - HYPERLIPIDAEMIA [None]
  - DEPRESSION [None]
  - EXTRAPYRAMIDAL DISORDER [None]
  - LARYNGEAL CANCER [None]
  - CORONARY ARTERY DISEASE [None]
  - BENIGN PROSTATIC HYPERPLASIA [None]
  - OESOPHAGEAL CARCINOMA [None]
  - EMOTIONAL DISTRESS [None]
  - DYSKINESIA [None]
  - DEFORMITY [None]
  - ACTIVITIES OF DAILY LIVING IMPAIRED [None]
  - DIABETES MELLITUS [None]
  - TONGUE BITING [None]
  - URINARY TRACT OBSTRUCTION [None]
  - TARDIVE DYSKINESIA [None]
  - INJURY [None]
  - ECONOMIC PROBLEM [None]
  - TREMOR [None]
  - NERVOUS SYSTEM DISORDER [None]
  - MENTAL DISORDER [None]
  - FISTULA [None]
  - SWOLLEN TONGUE [None]
  - DYSPHAGIA [None]
  - MUSCLE CONTRACTIONS INVOLUNTARY [None]
  - AKATHISIA [None]
  - PAIN [None]
  - NEUROPATHY PERIPHERAL [None]
  - INCORRECT DRUG ADMINISTRATION DURATION [None]
  - POST PROCEDURAL COMPLICATION [None]
  - EDENTULOUS [None]
  - CARDIAC FAILURE CONGESTIVE [None]
  - MYOCARDIAL INFARCTION [None]
  - MULTIPLE ALLERGIES [None]
